FAERS Safety Report 23239631 (Version 1)
Quarter: 2023Q4

REPORT INFORMATION
  Report Type: Spontaneous
  Country: US (occurrence: None)
  Receive Date: 20231128
  Receipt Date: 20231128
  Transmission Date: 20240110
  Serious: Yes (unspecified)
  Sender: FDA-Public Use
  Company Number: None

PATIENT
  Age: 40 Year
  Sex: Female
  Weight: 55.34 kg

DRUGS (5)
  1. QULIPTA [Suspect]
     Active Substance: ATOGEPANT
     Dosage: 60 MG ONE DAILY ORAL
     Route: 048
     Dates: start: 20230412, end: 20231027
  2. UBRELVY [Concomitant]
  3. DULOXETINE [Concomitant]
     Active Substance: DULOXETINE
  4. TRAZODONE [Concomitant]
     Active Substance: TRAZODONE HYDROCHLORIDE
  5. DROSPIRENONE [Concomitant]
     Active Substance: DROSPIRENONE

REACTIONS (1)
  - Alopecia [None]

NARRATIVE: CASE EVENT DATE: 20231022
